FAERS Safety Report 15695320 (Version 1)
Quarter: 2018Q4

REPORT INFORMATION
  Report Type: Report from Study
  Country: NL (occurrence: NL)
  Receive Date: 20181206
  Receipt Date: 20181206
  Transmission Date: 20190205
  Serious: Yes (Life-Threatening, Hospitalization)
  Sender: FDA-Public Use
  Company Number: NL-PFIZER INC-2018500759

PATIENT
  Age: 51 Year
  Sex: Female

DRUGS (8)
  1. SULFASALAZINE. [Suspect]
     Active Substance: SULFASALAZINE
     Indication: RHEUMATOID ARTHRITIS
     Dosage: 1000 MG, 2X/DAY
     Route: 050
     Dates: start: 20180821, end: 20180926
  2. PAROXETINE. [Concomitant]
     Active Substance: PAROXETINE
     Dosage: 20 MG, 2X/DAY
     Route: 048
  3. CELECOXIB. [Concomitant]
     Active Substance: CELECOXIB
     Dosage: 200 MG, 2X/DAY
     Route: 050
     Dates: start: 20180703, end: 20181023
  4. VALSARTAN. [Concomitant]
     Active Substance: VALSARTAN
     Dosage: UNK
     Route: 050
  5. METHOTREXAAT [METHOTREXATE SODIUM] [Concomitant]
     Dosage: 20 MG, WEEKLY
     Route: 050
     Dates: start: 20180703
  6. FOLIUMZUUR [Concomitant]
     Active Substance: FOLIC ACID
     Dosage: 10 MG, WEEKLY
     Route: 050
     Dates: start: 20180417
  7. PREDNISOLON [PREDNISOLONE] [Concomitant]
     Dosage: 10 MG, 1X/DAY
     Route: 050
     Dates: start: 20180821, end: 20181023
  8. CALCI CHEW D3 [Concomitant]
     Active Substance: CALCIUM CARBONATE\CHOLECALCIFEROL
     Dosage: 1000/800MG/IU, 1X/DAY
     Route: 050
     Dates: start: 20180821

REACTIONS (4)
  - Meningitis aseptic [Recovered/Resolved]
  - Pyrexia [Recovered/Resolved]
  - Liver function test abnormal [Recovered/Resolved]
  - Anaemia [Recovered/Resolved]

NARRATIVE: CASE EVENT DATE: 20180919
